FAERS Safety Report 13099850 (Version 1)
Quarter: 2017Q1

REPORT INFORMATION
  Report Type: Spontaneous
  Country: US (occurrence: US)
  Receive Date: 20170110
  Receipt Date: 20170110
  Transmission Date: 20170428
  Serious: No
  Sender: FDA-Public Use
  Company Number: US-TEVA-700837USA

PATIENT
  Age: 66 Year
  Sex: Male
  Weight: 104.42 kg

DRUGS (1)
  1. OMEGA-3-ACID ETHYL ESTERS CAPSULES, USP ONE GRAM CAPSULE [Suspect]
     Active Substance: OMEGA-3-ACID ETHYL ESTERS
     Indication: CARDIAC DISORDER

REACTIONS (1)
  - Chest pain [Unknown]

NARRATIVE: CASE EVENT DATE: 201608
